FAERS Safety Report 11364010 (Version 2)
Quarter: 2015Q3

REPORT INFORMATION
  Report Type: Spontaneous
  Country: US (occurrence: US)
  Receive Date: 20150811
  Receipt Date: 20150812
  Transmission Date: 20151125
  Serious: Yes (Other)
  Sender: FDA-Public Use
  Company Number: US-BAYER-2015-397459

PATIENT

DRUGS (2)
  1. ADVIL [Suspect]
     Active Substance: IBUPROFEN
  2. ALEVE [Suspect]
     Active Substance: NAPROXEN SODIUM

REACTIONS (2)
  - Unevaluable event [Unknown]
  - Cerebrovascular accident [Unknown]
